FAERS Safety Report 7814945-3 (Version None)
Quarter: 2011Q4

REPORT INFORMATION
  Report Type: 
  Country: None (occurrence: None)
  Receive Date: 20111013
  Receipt Date: 20111013
  Transmission Date: 20120403
  Serious: Yes (Hospitalization)
  Sender: FDA-Public Use
  Company Number: None

PATIENT
  Age: 66 Year
  Sex: Female
  Weight: 68.0396 kg

DRUGS (2)
  1. NEXIUM [Suspect]
     Indication: ULCER
     Dosage: UNKNOWN AT THIS TIME
     Dates: start: 20070911, end: 20071012
  2. NEXIUM [Suspect]
     Indication: GASTROOESOPHAGEAL REFLUX DISEASE
     Dosage: UNKNOWN AT THIS TIME
     Dates: start: 20070911, end: 20071012

REACTIONS (2)
  - CHEST PAIN [None]
  - ABDOMINAL PAIN UPPER [None]
